FAERS Safety Report 23920043 (Version 1)
Quarter: 2024Q2

REPORT INFORMATION
  Report Type: Spontaneous
  Country: US (occurrence: None)
  Receive Date: 20240530
  Receipt Date: 20240530
  Transmission Date: 20240716
  Serious: Yes (Other)
  Sender: FDA-Public Use
  Company Number: 2024A125441

PATIENT
  Sex: Male

DRUGS (1)
  1. SEROQUEL [Suspect]
     Active Substance: QUETIAPINE FUMARATE
     Route: 048
     Dates: start: 2023, end: 2024

REACTIONS (4)
  - Loss of consciousness [Unknown]
  - Sedation [Unknown]
  - Weight increased [Unknown]
  - Blood glucose increased [Unknown]
